FAERS Safety Report 4684635-7 (Version None)
Quarter: 2005Q2

REPORT INFORMATION
  Report Type: 
  Country: None (occurrence: None)
  Receive Date: 20050603
  Receipt Date: 20050518
  Transmission Date: 20051028
  Serious: Yes (Other)
  Sender: FDA-Public Use
  Company Number: L05-USA-01957-01

PATIENT
  Age: 63 Year
  Sex: Male

DRUGS (5)
  1. CARBAMAZEPINE [Suspect]
     Indication: BIPOLAR DISORDER
     Dosage: 600 MG QD
  2. CARBAMAZEPINE [Suspect]
     Indication: BIPOLAR DISORDER
     Dosage: 800 MG QD
  3. CARBAMAZEPINE [Suspect]
     Indication: BIPOLAR DISORDER
     Dosage: 1000 MG QD
  4. LAMOTRIGINE [Suspect]
     Indication: BIPOLAR DISORDER
     Dosage: 200 MG QD
  5. CLONAZEPAM [Concomitant]

REACTIONS (14)
  - AGITATION [None]
  - BALANCE DISORDER [None]
  - CYCLOTHYMIC DISORDER [None]
  - DEATH OF PET [None]
  - DEPRESSIVE SYMPTOM [None]
  - DIZZINESS [None]
  - DRUG INTERACTION [None]
  - PRESSURE OF SPEECH [None]
  - RASH [None]
  - RESTLESSNESS [None]
  - SEDATION [None]
  - SKIN REACTION [None]
  - SUICIDAL IDEATION [None]
  - TREATMENT NONCOMPLIANCE [None]
